FAERS Safety Report 6973711-1 (Version None)
Quarter: 2010Q3

REPORT INFORMATION
  Report Type: 
  Country: None (occurrence: None)
  Receive Date: 20100909
  Receipt Date: 20100901
  Transmission Date: 20110219
  Serious: Yes (Hospitalization, Other)
  Sender: FDA-Public Use
  Company Number: US-AMGEN-KDC435666

PATIENT
  Age: 68 Year
  Sex: Male

DRUGS (4)
  1. NEULASTA [Suspect]
     Indication: PROSTATE CANCER
     Route: 058
     Dates: start: 20080808, end: 20080925
  2. IXEMPRA KIT [Suspect]
     Route: 042
     Dates: start: 20080808, end: 20080925
  3. MITOXANTRONE [Suspect]
     Route: 042
     Dates: start: 20080808, end: 20080925
  4. PREDNISONE [Suspect]
     Route: 048
     Dates: start: 20080808, end: 20080925

REACTIONS (2)
  - DYSPNOEA [None]
  - LEFT VENTRICULAR DYSFUNCTION [None]
